FAERS Safety Report 12322096 (Version 2)
Quarter: 2016Q2

REPORT INFORMATION
  Report Type: Spontaneous
  Country: CN (occurrence: CN)
  Receive Date: 20160502
  Receipt Date: 20160509
  Transmission Date: 20160815
  Serious: Yes (Death, Other)
  Sender: FDA-Public Use
  Company Number: CN-GLAXOSMITHKLINE-CN2016GSK060684

PATIENT
  Age: 48 Year
  Sex: Male

DRUGS (1)
  1. VENTOLIN HFA [Suspect]
     Active Substance: ALBUTEROL SULFATE
     Indication: ASTHMA
     Dosage: 1 PUFF(S), UNK, SPRAY
     Route: 055
     Dates: start: 20150122, end: 20150122

REACTIONS (7)
  - Regurgitation [Fatal]
  - Foreign body [Fatal]
  - Cardiac failure [Fatal]
  - Obstructive airways disorder [Unknown]
  - Vomiting [Fatal]
  - Respiratory failure [Fatal]
  - Aspiration [Fatal]

NARRATIVE: CASE EVENT DATE: 20150122
